FAERS Safety Report 11863713 (Version 2)
Quarter: 2022Q2

REPORT INFORMATION
  Report Type: Spontaneous
  Country: CA (occurrence: CA)
  Receive Date: 20151223
  Receipt Date: 20220429
  Transmission Date: 20220721
  Serious: Yes (Other)
  Sender: FDA-Public Use
  Company Number: CA-PURDUE PHARMA-CAN-2015-0006340

PATIENT
  Age: 19 Year
  Sex: Female

DRUGS (8)
  1. OXYCODONE HYDROCHLORIDE [Suspect]
     Active Substance: OXYCODONE HYDROCHLORIDE
     Indication: Complex regional pain syndrome
     Dosage: UNKNOWN
     Route: 065
  2. OXYCODONE HYDROCHLORIDE [Suspect]
     Active Substance: OXYCODONE HYDROCHLORIDE
     Indication: Procedural pain
     Dosage: UNKNOWN
     Route: 065
  3. AMITRIPTYLINE [Suspect]
     Active Substance: AMITRIPTYLINE
     Indication: Product used for unknown indication
     Dosage: 150 MG, DAILY
     Route: 065
  4. FENTANYL [Suspect]
     Active Substance: FENTANYL
     Indication: Procedural pain
     Dosage: 100 MCG, Q3H
     Route: 062
  5. FENTANYL [Suspect]
     Active Substance: FENTANYL
     Indication: Complex regional pain syndrome
     Dosage: 25 MCG, Q1H
     Route: 062
  6. PREGABALIN [Suspect]
     Active Substance: PREGABALIN
     Indication: Complex regional pain syndrome
     Dosage: 300 MG, UNK
     Route: 065
  7. PREGABALIN [Suspect]
     Active Substance: PREGABALIN
     Indication: Procedural pain
  8. KETAMINE HYDROCHLORIDE [Concomitant]
     Active Substance: KETAMINE HYDROCHLORIDE
     Indication: Product used for unknown indication
     Dosage: UNK
     Route: 030

REACTIONS (2)
  - Weight increased [Unknown]
  - Drug withdrawal syndrome [Unknown]
